FAERS Safety Report 5453525-4 (Version None)
Quarter: 2007Q3

REPORT INFORMATION
  Report Type: 
  Country: None (occurrence: None)
  Receive Date: 20070913
  Receipt Date: 20070829
  Transmission Date: 20080115
  Serious: Yes (Other)
  Sender: FDA-Public Use
  Company Number: 2007RR-09702

PATIENT
  Age: 74 Year
  Sex: Female
  Weight: 58 kg

DRUGS (5)
  1. SIMVASTATIN [Suspect]
     Indication: ATRIAL FIBRILLATION
     Dosage: 10 MG, ORAL
     Route: 048
     Dates: start: 20060707, end: 20070806
  2. SIMVASTATIN [Suspect]
     Indication: TYPE 2 DIABETES MELLITUS
     Dosage: 10 MG, ORAL
     Route: 048
     Dates: start: 20060707, end: 20070806
  3. GLICLAZIDE (GLICLAZIDE) [Concomitant]
  4. RAMIPRIL [Concomitant]
  5. THYROXINE (THYROXINE) [Concomitant]

REACTIONS (1)
  - CARDIAC FLUTTER [None]
